FAERS Safety Report 8120099-9 (Version None)
Quarter: 2012Q1

REPORT INFORMATION
  Report Type: 
  Country: None (occurrence: None)
  Receive Date: 20120207
  Receipt Date: 20120126
  Transmission Date: 20120608
  Serious: Yes (Death, Hospitalization, Disabling, Other)
  Sender: FDA-Public Use
  Company Number: FR-ACTELION-A-CH2012-59466

PATIENT
  Sex: Female
  Weight: 49 kg

DRUGS (1)
  1. TRACLEER [Suspect]
     Indication: SCLERODERMA RENAL CRISIS
     Dosage: 62.5 MG, BID
     Route: 048
     Dates: start: 20110311, end: 20110523

REACTIONS (8)
  - COMA [None]
  - ANAEMIA [None]
  - RADIATION NECROSIS [None]
  - SOMNOLENCE [None]
  - MENINGORRHAGIA [None]
  - INTRACRANIAL PRESSURE INCREASED [None]
  - MENINGIOMA [None]
  - HYPOTENSION [None]
